FAERS Safety Report 12542210 (Version 2)
Quarter: 2016Q3

REPORT INFORMATION
  Report Type: Report from Study
  Country: AR (occurrence: AR)
  Receive Date: 20160708
  Receipt Date: 20160807
  Transmission Date: 20161109
  Serious: Yes (Hospitalization, Other)
  Sender: FDA-Public Use
  Company Number: PHHY2016AR090371

PATIENT
  Sex: Male

DRUGS (1)
  1. ENTRESTO [Suspect]
     Active Substance: SACUBITRIL\VALSARTAN
     Indication: CARDIAC FAILURE CHRONIC
     Dosage: 50 MG, QD
     Route: 065
     Dates: start: 20160625

REACTIONS (3)
  - Spongiform cardiomyopathy [Recovered/Resolved]
  - Prescribed underdose [Unknown]
  - Dyspnoea [Recovered/Resolved]
